FAERS Safety Report 4589253-7 (Version None)
Quarter: 2005Q1

REPORT INFORMATION
  Report Type: 
  Country: None (occurrence: None)
  Receive Date: 20050217
  Receipt Date: 20050217
  Transmission Date: 20050727
  Serious: No
  Sender: FDA-Public Use
  Company Number: None

PATIENT
  Sex: Female
  Weight: 290.7557 kg

DRUGS (1)
  1. ADIPEX [Suspect]
     Indication: OBESITY
     Dosage: 37.5 MG  BY MOUTH 1 CAP EVERY MORNING

REACTIONS (1)
  - OBESITY [None]
